FAERS Safety Report 20139182 (Version 1)
Quarter: 2021Q4

REPORT INFORMATION
  Report Type: Spontaneous
  Country: US (occurrence: None)
  Receive Date: 20211201
  Receipt Date: 20211201
  Transmission Date: 20220303
  Serious: No
  Sender: FDA-Public Use
  Company Number: None

PATIENT
  Age: 65 Year
  Sex: Female

DRUGS (1)
  1. SILADRYL ALLERGY MEDICINE [Suspect]
     Active Substance: DIPHENHYDRAMINE HYDROCHLORIDE
     Indication: Antiallergic therapy
     Dosage: OTHER QUANTITY : 1 TEASPOON(S);?OTHER FREQUENCY : Q4-6 HOURS;?
     Route: 048

REACTIONS (2)
  - Circumstance or information capable of leading to medication error [None]
  - Device use confusion [None]

NARRATIVE: CASE EVENT DATE: 20211201
